FAERS Safety Report 6076333-2 (Version None)
Quarter: 2009Q1

REPORT INFORMATION
  Report Type: 
  Country: None (occurrence: None)
  Receive Date: 20090209
  Receipt Date: 20090129
  Transmission Date: 20090719
  Serious: Yes (Other)
  Sender: FDA-Public Use
  Company Number: US025160

PATIENT
  Age: 40 Year
  Sex: Female
  Weight: 93.8946 kg

DRUGS (4)
  1. PROVIGIL [Suspect]
     Indication: HYPERSOMNIA
     Dosage: 400 MG QD ORAL
     Route: 048
     Dates: start: 20040101, end: 20040404
  2. PROVIGIL [Suspect]
     Indication: SLEEP APNOEA SYNDROME
     Dosage: 400 MG QD ORAL
     Route: 048
     Dates: start: 20040101, end: 20040404
  3. LEVOTHYROXINE SODIUM [Concomitant]
  4. SERTRALINE [Concomitant]

REACTIONS (6)
  - BLEEDING PERIPARTUM [None]
  - CAESAREAN SECTION [None]
  - DRUG EXPOSURE DURING PREGNANCY [None]
  - GESTATIONAL DIABETES [None]
  - PREMATURE LABOUR [None]
  - PREMATURE SEPARATION OF PLACENTA [None]
